FAERS Safety Report 16956451 (Version 1)
Quarter: 2019Q4

REPORT INFORMATION
  Report Type: Spontaneous
  Country: US (occurrence: US)
  Receive Date: 20190905
  Receipt Date: 20190905
  Transmission Date: 20200122
  Serious: Yes (Other)
  Sender: FDA-Public Use
  Company Number: None

PATIENT
  Age: 68 Year
  Sex: Female
  Weight: 54.43 kg

DRUGS (13)
  1. PRALUENT [Suspect]
     Active Substance: ALIROCUMAB
     Indication: PERIPHERAL ARTERIAL OCCLUSIVE DISEASE
     Dosage: ?          QUANTITY:1 DF DOSAGE FORM;?
     Dates: start: 20190213, end: 20190303
  2. PRALUENT [Suspect]
     Active Substance: ALIROCUMAB
     Indication: BLOOD CHOLESTEROL INCREASED
     Dosage: ?          QUANTITY:1 DF DOSAGE FORM;?
     Dates: start: 20190213, end: 20190303
  3. LISINOPRIL. [Concomitant]
     Active Substance: LISINOPRIL
  4. PANTOPRAZOLE [Concomitant]
     Active Substance: PANTOPRAZOLE
  5. COQ10 [Concomitant]
     Active Substance: UBIDECARENONE
  6. ROSUVASTATIN. [Concomitant]
     Active Substance: ROSUVASTATIN
  7. LEVOTHYROXINE. [Concomitant]
     Active Substance: LEVOTHYROXINE
  8. VITAMIN D3 [Concomitant]
     Active Substance: CHOLECALCIFEROL
  9. CALCIUM [Concomitant]
     Active Substance: CALCIUM
  10. CLOPIDOGREL [Concomitant]
     Active Substance: CLOPIDOGREL BISULFATE
  11. TURMERIC [Concomitant]
     Active Substance: HERBALS\TURMERIC
  12. RALOXIFENE. [Concomitant]
     Active Substance: RALOXIFENE
  13. LOW DOSE ASPRIN [Concomitant]
     Active Substance: ASPIRIN

REACTIONS (4)
  - Rash [None]
  - Pain [None]
  - Swelling [None]
  - Pruritus [None]

NARRATIVE: CASE EVENT DATE: 20190214
